FAERS Safety Report 18987454 (Version 1)
Quarter: 2021Q1

REPORT INFORMATION
  Report Type: Spontaneous
  Country: US (occurrence: US)
  Receive Date: 20210309
  Receipt Date: 20210309
  Transmission Date: 20210420
  Serious: Yes (Hospitalization)
  Sender: FDA-Public Use
  Company Number: None

PATIENT
  Age: 49 Year
  Sex: Male
  Weight: 109 kg

DRUGS (3)
  1. ALBUTEROL HFA 90 MCG/ACTUATION 2 PUFFS PO Q6H PRN WHEEZING [Concomitant]
  2. LEVETIRACETAM 750 MG 1 TABLET PO Q12HRS [Concomitant]
  3. APIXABAN [Suspect]
     Active Substance: APIXABAN
     Indication: TRANSVERSE SINUS THROMBOSIS
     Route: 048
     Dates: start: 20200521, end: 20210215

REACTIONS (2)
  - Condition aggravated [None]
  - Deep vein thrombosis [None]

NARRATIVE: CASE EVENT DATE: 20210215
